FAERS Safety Report 17516697 (Version 1)
Quarter: 2020Q1

REPORT INFORMATION
  Report Type: Spontaneous
  Country: DE (occurrence: DE)
  Receive Date: 20200309
  Receipt Date: 20200309
  Transmission Date: 20200409
  Serious: Yes (Congenital Anomaly, Other)
  Sender: FDA-Public Use
  Company Number: NVSC2020DE061485

PATIENT
  Age: 1 Day
  Sex: Female
  Weight: 2.93 kg

DRUGS (5)
  1. UTROGEST [Concomitant]
     Active Substance: PROGESTERONE
     Indication: FOETAL EXPOSURE DURING PREGNANCY
     Dosage: 200 [MG/D (BIS 100) ]
     Route: 064
     Dates: start: 20190114, end: 20190311
  2. PARACETAMOL [Concomitant]
     Active Substance: ACETAMINOPHEN
     Indication: FOETAL EXPOSURE DURING PREGNANCY
     Dosage: UNK
     Route: 064
     Dates: start: 20181224, end: 20181224
  3. METOPROLOL. [Suspect]
     Active Substance: METOPROLOL
     Indication: FOETAL EXPOSURE DURING PREGNANCY
     Dosage: MATERNAL DOSE: 47.5 MG QD
     Route: 064
     Dates: start: 20181008, end: 20190719
  4. LEFAX [Concomitant]
     Active Substance: DIMETHICONE
     Indication: FOETAL EXPOSURE DURING PREGNANCY
     Dosage: UNK
     Route: 064
  5. BUSCOPAN [Concomitant]
     Active Substance: BUTYLSCOPOLAMINE BROMIDE
     Indication: FOETAL EXPOSURE DURING PREGNANCY
     Dosage: UNK
     Route: 064
     Dates: start: 20181223, end: 20181224

REACTIONS (3)
  - Cyanosis neonatal [Recovered/Resolved]
  - Atrial septal defect [Not Recovered/Not Resolved]
  - Small for dates baby [Recovered/Resolved]

NARRATIVE: CASE EVENT DATE: 20190719
